FAERS Safety Report 21398845 (Version 1)
Quarter: 2022Q4

REPORT INFORMATION
  Report Type: Spontaneous
  Country: DE (occurrence: DE)
  Receive Date: 20221001
  Receipt Date: 20221001
  Transmission Date: 20230113
  Serious: Yes (Hospitalization, Other)
  Sender: FDA-Public Use
  Company Number: DE-ADRED-08179-01

PATIENT
  Age: 57 Year
  Sex: Male
  Weight: 80 kg

DRUGS (6)
  1. FENTANYL [Suspect]
     Active Substance: FENTANYL
     Indication: Product used for unknown indication
     Dosage: 10 MICROGRAM/HOUR
     Route: 062
  2. ESCITALOPRAM [Suspect]
     Active Substance: ESCITALOPRAM OXALATE
     Indication: Product used for unknown indication
     Dosage: 20 MILLIGRAM, ONCE A DAY (1-0-0-0 )
     Route: 048
  3. VALPROIC ACID [Suspect]
     Active Substance: VALPROIC ACID
     Indication: Product used for unknown indication
     Dosage: 300 MILLIGRAM, TWO TIMES A DAY (1-0-1-0)
     Route: 048
  4. PANTOPRAZOLE SODIUM [Concomitant]
     Active Substance: PANTOPRAZOLE SODIUM
     Indication: Product used for unknown indication
     Dosage: 40 MILLIGRAM, ONCE A DAY (0-0-1-0)
     Route: 048
  5. PANCREAS [Concomitant]
     Indication: Product used for unknown indication
     Dosage: 20000 INTERNATIONAL UNIT, 3 TIMES A DAY
     Route: 048
  6. TORSEMIDE [Concomitant]
     Active Substance: TORSEMIDE
     Indication: Product used for unknown indication
     Dosage: 10 MILLIGRAM, TWO TIMES A DAY (1-1-0-0
     Route: 048

REACTIONS (6)
  - Pancytopenia [Unknown]
  - Subdural haematoma [Unknown]
  - Anisocoria [Unknown]
  - Fall [Unknown]
  - Anaemia [Unknown]
  - Disturbance in attention [Unknown]
